FAERS Safety Report 9327328 (Version 2)
Quarter: 2013Q2

REPORT INFORMATION
  Report Type: Spontaneous
  Country: GB (occurrence: GB)
  Receive Date: 20130604
  Receipt Date: 20130618
  Transmission Date: 20140414
  Serious: Yes (Other)
  Sender: FDA-Public Use
  Company Number: GB-AMGEN-GBRSP2013038660

PATIENT
  Age: 61 Year
  Sex: Female

DRUGS (9)
  1. ARANESP [Suspect]
     Indication: VASCULITIS
     Dosage: 30 MG, QWK
     Route: 058
     Dates: start: 2006
  2. ARANESP [Suspect]
     Indication: RENAL FAILURE CHRONIC
  3. MYFORTIC [Concomitant]
  4. PREDNISOLONE [Concomitant]
  5. ALENDRONIC ACID [Concomitant]
  6. LANSOPRAZOLE [Concomitant]
  7. RAMIPRIL [Concomitant]
  8. CALCARB WITH VITAMIN D [Concomitant]
  9. CALCICHEW [Concomitant]

REACTIONS (9)
  - Haemoglobin decreased [Unknown]
  - Feeling abnormal [Unknown]
  - Gastric infection [Unknown]
  - White blood cell count increased [Unknown]
  - Incorrect storage of drug [Unknown]
  - Gastroenteritis [Unknown]
  - C-reactive protein increased [Unknown]
  - Blood creatinine increased [Unknown]
  - Malaise [Unknown]
